FAERS Safety Report 6862290-5 (Version None)
Quarter: 2010Q3

REPORT INFORMATION
  Report Type: 
  Country: None (occurrence: None)
  Receive Date: 20100721
  Receipt Date: 20100709
  Transmission Date: 20110219
  Serious: Yes (Hospitalization)
  Sender: FDA-Public Use
  Company Number: DE-AMGEN-US368608

PATIENT
  Sex: Female
  Weight: 80 kg

DRUGS (5)
  1. ENBREL [Suspect]
     Indication: RHEUMATOID ARTHRITIS
     Route: 058
     Dates: start: 20090225, end: 20091201
  2. ENBREL [Suspect]
     Route: 058
     Dates: start: 20100101, end: 20100101
  3. LEVOTHYROXINE SODIUM [Concomitant]
  4. METFORMIN [Concomitant]
  5. TEMGESIC [Concomitant]

REACTIONS (5)
  - ARTHRALGIA [None]
  - COAGULATION FACTOR VIII LEVEL INCREASED [None]
  - DEEP VEIN THROMBOSIS [None]
  - DRUG EFFECT DECREASED [None]
  - JOINT SWELLING [None]
